FAERS Safety Report 10027982 (Version 2)
Quarter: 2014Q3

REPORT INFORMATION
  Report Type: Spontaneous
  Country: IT (occurrence: IT)
  Receive Date: 20140321
  Receipt Date: 20140708
  Transmission Date: 20150326
  Serious: Yes (Other)
  Sender: FDA-Public Use
  Company Number: IT-SA-2014SA032100

PATIENT
  Age: 76 Year
  Sex: Male

DRUGS (4)
  1. NORVASC [Suspect]
     Active Substance: AMLODIPINE BESYLATE
     Indication: HYPERTENSIVE CRISIS
     Route: 048
     Dates: start: 20130911, end: 20130911
  2. VENITRIN [Suspect]
     Active Substance: NITROGLYCERIN
     Indication: HYPERTENSIVE CRISIS
     Route: 042
     Dates: start: 20130911, end: 20130911
  3. LASIX [Suspect]
     Active Substance: FUROSEMIDE
     Indication: HYPERTENSIVE CRISIS
     Route: 042
     Dates: start: 20130911, end: 20130911
  4. CATAPRESAN [Suspect]
     Active Substance: CLONIDINE
     Indication: HYPERTENSIVE CRISIS
     Route: 042
     Dates: start: 20130911, end: 20130911

REACTIONS (1)
  - Syncope [Recovered/Resolved]

NARRATIVE: CASE EVENT DATE: 20130911
